FAERS Safety Report 19535436 (Version 1)
Quarter: 2021Q3

REPORT INFORMATION
  Report Type: Spontaneous
  Country: US (occurrence: US)
  Receive Date: 20210714
  Receipt Date: 20210714
  Transmission Date: 20211014
  Serious: No
  Sender: FDA-Public Use
  Company Number: US-AUROBINDO-AUR-APL-2020-048353

PATIENT
  Age: 69 Year
  Sex: Female
  Weight: 81.65 kg

DRUGS (1)
  1. VALACYCLOVIR [Suspect]
     Active Substance: VALACYCLOVIR HYDROCHLORIDE
     Indication: HERPES VIRUS INFECTION
     Dosage: 1 GRAM, 3 TIMES A DAY
     Route: 065
     Dates: start: 20200312

REACTIONS (11)
  - Product formulation issue [Unknown]
  - Gastrooesophageal reflux disease [Not Recovered/Not Resolved]
  - Headache [Not Recovered/Not Resolved]
  - Off label use [Unknown]
  - Blood pressure fluctuation [Unknown]
  - Dyspepsia [Not Recovered/Not Resolved]
  - Wrong technique in product usage process [Unknown]
  - Condition aggravated [Unknown]
  - Dizziness [Not Recovered/Not Resolved]
  - Product colour issue [Unknown]
  - Asthenia [Recovered/Resolved]
